FAERS Safety Report 4376965-3 (Version None)
Quarter: 2004Q2

REPORT INFORMATION
  Report Type: 
  Country: None (occurrence: None)
  Receive Date: 20040614
  Receipt Date: 20040604
  Transmission Date: 20050107
  Serious: Yes (Hospitalization)
  Sender: FDA-Public Use
  Company Number: FR-MERCK-0406FRA00015

PATIENT
  Age: 63 Year
  Sex: Male

DRUGS (9)
  1. ALFUZOSIN HYDROCHLORIDE [Concomitant]
     Route: 048
  2. ALLOPURINOL [Suspect]
     Indication: GOUT
     Route: 048
     Dates: end: 20040501
  3. ASPIRIN LYSINE [Suspect]
     Indication: MYOCARDIAL INFARCTION
     Route: 048
     Dates: end: 20040501
  4. BISOPROLOL [Concomitant]
     Route: 048
  5. FUROSEMIDE [Concomitant]
     Route: 065
  6. LISINOPRIL [Concomitant]
     Route: 048
  7. OMEPRAZOLE [Concomitant]
     Route: 048
  8. ZOCOR [Suspect]
     Indication: HYPERLIPIDAEMIA
     Route: 048
  9. WARFARIN SODIUM [Suspect]
     Indication: CARDIAC FAILURE
     Route: 048
     Dates: end: 20040501

REACTIONS (3)
  - DRUG INTERACTION [None]
  - GINGIVAL BLEEDING [None]
  - INTERNATIONAL NORMALISED RATIO INCREASED [None]
